FAERS Safety Report 24603606 (Version 1)
Quarter: 2024Q4

REPORT INFORMATION
  Report Type: Report from Study
  Country: US (occurrence: US)
  Receive Date: 20241111
  Receipt Date: 20241111
  Transmission Date: 20250114
  Serious: Yes (Death, Other)
  Sender: MERZ
  Company Number: US-MERZ PHARMACEUTICALS, LLC-ACO_176589_2023

PATIENT
  Age: 78 Year
  Sex: Female

DRUGS (8)
  1. INBRIJA [Suspect]
     Active Substance: LEVODOPA
     Indication: Parkinson^s disease
     Dosage: 2 DOSAGE FORM (84 MILLIGRAM), PRN (NOT TO EXCEED 5 DOSES)
     Dates: start: 20230403
  2. INBRIJA [Suspect]
     Active Substance: LEVODOPA
     Indication: On and off phenomenon
     Dosage: 2 DOSAGE FORM (84 MILLIGRAM), PRN (NOT TO EXCEED 5 DOSES)
     Dates: start: 20230404
  3. INBRIJA [Suspect]
     Active Substance: LEVODOPA
     Dosage: 2 DOSAGE FORM (84 MILLIGRAM), PRN (NOT TO EXCEED 5 DOSES)
     Dates: start: 20230404
  4. INBRIJA [Suspect]
     Active Substance: LEVODOPA
     Dosage: 2 DOSAGE FORM (84 MILLIGRAM), PRN (DO NOT EXCEED 5 DOSES PER DAY)
     Dates: start: 20230403
  5. INBRIJA [Suspect]
     Active Substance: LEVODOPA
     Dosage: 2 DOSAGE FORM (84 MILLIGRAM), PRN (DO NOT EXCEED 5 DOSES PER DAY)
     Dates: start: 20230403
  6. AMANTADINE [Suspect]
     Active Substance: AMANTADINE
     Indication: Parkinson^s disease
     Dosage: UNK
     Route: 065
  7. CARBIDOPA LEVODOPA [Concomitant]
     Active Substance: CARBIDOPA\LEVODOPA
     Indication: Product used for unknown indication
     Dosage: UNK
     Route: 065
  8. RYTARY [Concomitant]
     Active Substance: CARBIDOPA\LEVODOPA
     Indication: Product used for unknown indication
     Dosage: 48.75-195 MILLIGRAM AND 63.25-145 MILLIGRAM, 6X/QD
     Route: 065

REACTIONS (6)
  - Death [Fatal]
  - Therapeutic response unexpected [Unknown]
  - Fatigue [Not Recovered/Not Resolved]
  - Nausea [Not Recovered/Not Resolved]
  - Cough [Not Recovered/Not Resolved]
  - Sputum discoloured [Not Recovered/Not Resolved]

NARRATIVE: CASE EVENT DATE: 20240918
